FAERS Safety Report 23466395 (Version 1)
Quarter: 2024Q1

REPORT INFORMATION
  Report Type: Spontaneous
  Country: CN (occurrence: CN)
  Receive Date: 20240201
  Receipt Date: 20240201
  Transmission Date: 20240409
  Serious: Yes (Hospitalization, Other)
  Sender: FDA-Public Use
  Company Number: None

PATIENT
  Age: 68 Year
  Sex: Male
  Weight: 65 kg

DRUGS (24)
  1. CYCLOPHOSPHAMIDE [Suspect]
     Active Substance: CYCLOPHOSPHAMIDE
     Indication: Diffuse large B-cell lymphoma
     Dosage: 0.7 G, ONE TIME IN ONE DAY, DILUTED WITH 100 ML OF 0.9% SODIUM CHLORIDE, D1, FOURTH CYCLE, AS A PART
     Route: 041
     Dates: start: 20240112, end: 20240112
  2. CYCLOPHOSPHAMIDE [Suspect]
     Active Substance: CYCLOPHOSPHAMIDE
     Dosage: UNK, AS A PART OF CHOP REGIMEN COMBINED WITH RITUXIMAB, 1 CYCLE
     Route: 065
     Dates: start: 20231030
  3. CYCLOPHOSPHAMIDE [Suspect]
     Active Substance: CYCLOPHOSPHAMIDE
     Dosage: UNK, AS A PART OF CHOP REGIMEN COMBINED WITH RITUXIMAB, 2 CYCLE
     Route: 065
     Dates: start: 20231121
  4. CYCLOPHOSPHAMIDE [Suspect]
     Active Substance: CYCLOPHOSPHAMIDE
     Dosage: UNK, AS A PART OF CHOP REGIMEN COMBINED WITH RITUXIMAB, 3 CYCLE
     Route: 065
     Dates: start: 20231216
  5. SODIUM CHLORIDE [Suspect]
     Active Substance: SODIUM CHLORIDE
     Indication: Medication dilution
     Dosage: 100 ML (0.9 %), ONE TIME IN ONE DAY, USED TO DILUTE 0.7 G OF CYCLOPHOSPHAMIDE, D1, FOURTH CYCLE, AS
     Route: 041
     Dates: start: 20240112, end: 20240112
  6. SODIUM CHLORIDE [Suspect]
     Active Substance: SODIUM CHLORIDE
     Dosage: 20 ML (0.9 %), ONE TIME IN ONE DAY, USED TO DILUTE 2 MG OF VINDESINE HYDROCHLORIDE, D1, FOURTH CYCLE
     Route: 042
     Dates: start: 20240112, end: 20240112
  7. SODIUM CHLORIDE [Suspect]
     Active Substance: SODIUM CHLORIDE
     Dosage: 500 ML (0.9 %), USED TO DILUTE 600 MG OF RITUXIMAB, D0, FOURTH CYCLE, AS A PART OF CHOP REGIMEN COMB
     Route: 041
     Dates: start: 20240111
  8. DEXTROSE [Suspect]
     Active Substance: DEXTROSE\DEXTROSE MONOHYDRATE
     Indication: Medication dilution
     Dosage: 150 ML (5 %), ONE TIME IN ONE DAY, USED TO DILUTE 60 MG OF EPIRUBICIN HYDROCHLORIDE, D1, FOURTH CYCL
     Route: 041
     Dates: start: 20240112, end: 20240112
  9. EPIRUBICIN HYDROCHLORIDE [Suspect]
     Active Substance: EPIRUBICIN HYDROCHLORIDE
     Indication: Diffuse large B-cell lymphoma
     Dosage: 60 MG, ONE TIME IN ONE DAY, DILUTED WITH 150 ML OF 5% GLUCOSE, D1, FOURTH CYCLE, AS A PART OF CHOP R
     Route: 041
     Dates: start: 20240112, end: 20240112
  10. EPIRUBICIN HYDROCHLORIDE [Suspect]
     Active Substance: EPIRUBICIN HYDROCHLORIDE
     Dosage: UNK, AS A PART OF CHOP REGIMEN COMBINED WITH RITUXIMAB, 1 CYCLE
     Route: 065
     Dates: start: 20231030
  11. EPIRUBICIN HYDROCHLORIDE [Suspect]
     Active Substance: EPIRUBICIN HYDROCHLORIDE
     Dosage: UNK, AS A PART OF CHOP REGIMEN COMBINED WITH RITUXIMAB, 2 CYCLE
     Route: 065
     Dates: start: 20231121
  12. EPIRUBICIN HYDROCHLORIDE [Suspect]
     Active Substance: EPIRUBICIN HYDROCHLORIDE
     Dosage: UNK, AS A PART OF CHOP REGIMEN COMBINED WITH RITUXIMAB, 3 CYCLE
     Route: 065
     Dates: start: 20231216
  13. VINDESINE SULFATE [Suspect]
     Active Substance: VINDESINE SULFATE
     Indication: Diffuse large B-cell lymphoma
     Dosage: 2 MG, ONE TIME IN ONE DAY, DILUTED WITH 20 ML OF 0.9% SODIUM CHLORIDE, D1, AS A PART OF CHOP REGIMEN
     Route: 042
     Dates: start: 20240112, end: 20240112
  14. VINDESINE SULFATE [Suspect]
     Active Substance: VINDESINE SULFATE
     Dosage: UNK, AS A PART OF CHOP REGIMEN COMBINED WITH RITUXIMAB, 1 CYCLE
     Route: 065
     Dates: start: 20231030
  15. VINDESINE SULFATE [Suspect]
     Active Substance: VINDESINE SULFATE
     Dosage: UNK, AS A PART OF CHOP REGIMEN COMBINED WITH RITUXIMAB, 2 CYCLE
     Route: 065
     Dates: start: 20231121
  16. VINDESINE SULFATE [Suspect]
     Active Substance: VINDESINE SULFATE
     Dosage: UNK, AS A PART OF CHOP REGIMEN COMBINED WITH RITUXIMAB, 3 CYCLE
     Route: 065
     Dates: start: 20231216
  17. PREDNISOLONE ACETATE [Suspect]
     Active Substance: PREDNISOLONE ACETATE
     Indication: Diffuse large B-cell lymphoma
     Dosage: 60 MG, ONE TIME IN ONE DAY, D1-5, FOURTH CYCLE, AS A PART OF CHOP REGIMEN COMBINED WITH RITUXIMAB
     Route: 048
     Dates: start: 20240112, end: 20240116
  18. PREDNISOLONE ACETATE [Suspect]
     Active Substance: PREDNISOLONE ACETATE
     Dosage: UNK, AS A PART OF CHOP REGIMEN COMBINED WITH RITUXIMAB, 1 CYCLE
     Route: 065
     Dates: start: 20231030
  19. PREDNISOLONE ACETATE [Suspect]
     Active Substance: PREDNISOLONE ACETATE
     Dosage: UNK, AS A PART OF CHOP REGIMEN COMBINED WITH RITUXIMAB, 2 CYCLE
     Route: 065
     Dates: start: 20231121
  20. PREDNISOLONE ACETATE [Suspect]
     Active Substance: PREDNISOLONE ACETATE
     Dosage: UNK, AS A PART OF CHOP REGIMEN COMBINED WITH RITUXIMAB, 3 CYCLE
     Route: 065
     Dates: start: 20231216
  21. RITUXIMAB [Suspect]
     Active Substance: RITUXIMAB
     Indication: Diffuse large B-cell lymphoma
     Dosage: 600 MG, DILUTED WITH 500 ML OF 0.9% SODIUM CHLORIDE, D0 (PURCHASED FROM OTHER PLACES, FOURTH CYCLE,
     Route: 041
     Dates: start: 20240111
  22. RITUXIMAB [Suspect]
     Active Substance: RITUXIMAB
     Dosage: UNK, COMBINED WITH CHOP REGIMEN, 1 CYCLE
     Route: 065
     Dates: start: 20231030
  23. RITUXIMAB [Suspect]
     Active Substance: RITUXIMAB
     Dosage: UNK, COMBINED WITH CHOP REGIMEN, 2 CYCLE
     Route: 065
     Dates: start: 20231121
  24. RITUXIMAB [Suspect]
     Active Substance: RITUXIMAB
     Dosage: UNK, COMBINED WITH CHOP REGIMEN, 3 CYCLE
     Route: 065
     Dates: start: 20231216

REACTIONS (2)
  - Myelosuppression [Recovering/Resolving]
  - Granulocyte count decreased [Recovering/Resolving]

NARRATIVE: CASE EVENT DATE: 20240120
